FAERS Safety Report 20087216 (Version 1)
Quarter: 2021Q4

REPORT INFORMATION
  Report Type: Spontaneous
  Country: KR (occurrence: None)
  Receive Date: 20211118
  Receipt Date: 20211118
  Transmission Date: 20220303
  Serious: Yes (Other)
  Sender: FDA-Public Use
  Company Number: 2021A806141

PATIENT
  Age: 60 Year
  Sex: Female

DRUGS (3)
  1. GEFITINIB [Suspect]
     Active Substance: GEFITINIB
     Indication: Lung neoplasm malignant
     Route: 048
  2. OSIMERTINIB [Concomitant]
     Active Substance: OSIMERTINIB
  3. CISPLATIN/PEMETREXED [Concomitant]

REACTIONS (1)
  - Malignant neoplasm progression [Unknown]
